FAERS Safety Report 9274985 (Version 1)
Quarter: 2013Q2

REPORT INFORMATION
  Report Type: Spontaneous
  Country: US (occurrence: US)
  Receive Date: 20130507
  Receipt Date: 20130507
  Transmission Date: 20140414
  Serious: Yes (Hospitalization)
  Sender: FDA-Public Use
  Company Number: US-ELI_LILLY_AND_COMPANY-US201304008485

PATIENT
  Age: 33 Year
  Sex: Male

DRUGS (2)
  1. HUMALOG LISPRO [Suspect]
  2. HUMULIN NPH [Suspect]

REACTIONS (2)
  - Diabetic ketoacidosis [Unknown]
  - Blood glucose increased [Unknown]
